FAERS Safety Report 5154236-5 (Version None)
Quarter: 2006Q4

REPORT INFORMATION
  Report Type: 
  Country: None (occurrence: None)
  Receive Date: 20061114
  Receipt Date: 20061103
  Transmission Date: 20070319
  Serious: Yes (Other)
  Sender: FDA-Public Use
  Company Number: GXKR2006DE07148

PATIENT
  Sex: Female

DRUGS (1)
  1. METOHEXAL SUCC COMP (NGX) (HYDROCHLOROTHIAZIDE, METOPROLOL)TABLET [Suspect]
     Dosage: ORAL
     Route: 048

REACTIONS (5)
  - ALLERGIC OEDEMA [None]
  - DIARRHOEA [None]
  - LOCAL SWELLING [None]
  - SWOLLEN TONGUE [None]
  - TONGUE DISORDER [None]
